FAERS Safety Report 9841298 (Version 1)
Quarter: 2014Q1

REPORT INFORMATION
  Report Type: Spontaneous
  Country: GR (occurrence: GR)
  Receive Date: 20140124
  Receipt Date: 20140124
  Transmission Date: 20141002
  Serious: Yes (Other)
  Sender: FDA-Public Use
  Company Number: GR-ACTAVIS-2014-00356

PATIENT
  Age: 33 Year
  Sex: Female

DRUGS (1)
  1. LAMOTRIGINE (UNKNOWN) [Suspect]
     Indication: JUVENILE MYOCLONIC EPILEPSY
     Dosage: UNK
     Route: 065

REACTIONS (2)
  - Drug hypersensitivity [Recovered/Resolved]
  - Lymphadenopathy [Recovered/Resolved]
